FAERS Safety Report 5610778-7 (Version None)
Quarter: 2008Q1

REPORT INFORMATION
  Report Type: 
  Country: None (occurrence: None)
  Receive Date: 20080201
  Receipt Date: 20080130
  Transmission Date: 20080703
  Serious: Yes (Death)
  Sender: FDA-Public Use
  Company Number: US-BRISTOL-MYERS SQUIBB COMPANY-12986592

PATIENT
  Age: 8 Decade
  Sex: Male

DRUGS (2)
  1. DEFINITY [Suspect]
  2. SEDATIVE [Concomitant]
     Indication: FEELING OF RELAXATION

REACTIONS (1)
  - CARDIAC ARREST [None]
